FAERS Safety Report 14185588 (Version 2)
Quarter: 2018Q2

REPORT INFORMATION
  Report Type: Spontaneous
  Country: US (occurrence: US)
  Receive Date: 20171114
  Receipt Date: 20180413
  Transmission Date: 20180711
  Serious: Yes (Hospitalization, Other)
  Sender: FDA-Public Use
  Company Number: US-VIIV HEALTHCARE LIMITED-US2017GSK174068

PATIENT
  Sex: Female

DRUGS (1)
  1. TIVICAY [Suspect]
     Active Substance: DOLUTEGRAVIR SODIUM
     Indication: HIV INFECTION
     Dosage: 50 MG, QD

REACTIONS (6)
  - Ill-defined disorder [Unknown]
  - Myopathy [Unknown]
  - Myocarditis [Unknown]
  - Blood creatine phosphokinase increased [Unknown]
  - Renal disorder [Unknown]
  - Rhabdomyolysis [Unknown]
